FAERS Safety Report 16011299 (Version 1)
Quarter: 2019Q1

REPORT INFORMATION
  Report Type: Spontaneous
  Country: BG (occurrence: BG)
  Receive Date: 20190227
  Receipt Date: 20190227
  Transmission Date: 20190418
  Serious: Yes (Other)
  Sender: FDA-Public Use
  Company Number: BG-ROCHE-2273527

PATIENT
  Age: 59 Year
  Sex: Male
  Weight: 105 kg

DRUGS (6)
  1. METHOTREXATE. [Concomitant]
     Active Substance: METHOTREXATE
     Indication: RHEUMATOID ARTHRITIS
     Dosage: 12,5 MG
     Route: 048
  2. INSULIN RAPID [Concomitant]
     Active Substance: INSULIN NOS
     Indication: TYPE 2 DIABETES MELLITUS
     Dosage: 18 + 18 + 18
     Route: 065
  3. FOLIC ACID. [Concomitant]
     Active Substance: FOLIC ACID
     Dosage: 3 X 2 TABL. 48 HOURS AFTER METHOTREXATE
     Route: 048
  4. INSULIN BASAL [Concomitant]
     Active Substance: INSULIN NOS
     Indication: TYPE 2 DIABETES MELLITUS
     Dosage: 38 IN 10 P.M.
     Route: 065
  5. ROACTEMRA [Suspect]
     Active Substance: TOCILIZUMAB
     Indication: RHEUMATOID ARTHRITIS
     Route: 058
     Dates: start: 201804, end: 2019
  6. ZEFFIX [Concomitant]
     Active Substance: LAMIVUDINE
     Dosage: 2 X 1 TABL.
     Route: 048

REACTIONS (1)
  - Vasculitic rash [Recovering/Resolving]

NARRATIVE: CASE EVENT DATE: 20190215
